FAERS Safety Report 12408702 (Version 1)
Quarter: 2016Q2

REPORT INFORMATION
  Report Type: Spontaneous
  Country: NZ (occurrence: NZ)
  Receive Date: 20160526
  Receipt Date: 20160526
  Transmission Date: 20160815
  Serious: Yes (Other)
  Sender: FDA-Public Use
  Company Number: NZ-REGENERON PHARMACEUTICALS, INC.-2016-17584

PATIENT

DRUGS (1)
  1. EYLEA [Suspect]
     Active Substance: AFLIBERCEPT
     Indication: PRODUCT USED FOR UNKNOWN INDICATION
     Dosage: UNK
     Dates: end: 20151130

REACTIONS (2)
  - Therapy cessation [Unknown]
  - Choroidal neovascularisation [Unknown]

NARRATIVE: CASE EVENT DATE: 20151130
